FAERS Safety Report 19967829 (Version 2)
Quarter: 2021Q4

REPORT INFORMATION
  Report Type: Spontaneous
  Country: JP (occurrence: JP)
  Receive Date: 20211019
  Receipt Date: 20211028
  Transmission Date: 20220303
  Serious: Yes (Death)
  Sender: FDA-Public Use
  Company Number: JP-BAYER-2021A231754

PATIENT
  Age: 78 Year
  Sex: Male

DRUGS (1)
  1. STIVARGA [Suspect]
     Active Substance: REGORAFENIB
     Indication: Colorectal cancer
     Dosage: 120MG,5 COURSES
     Route: 048
     Dates: start: 20200108

REACTIONS (2)
  - Colorectal cancer [Fatal]
  - Off label use [None]

NARRATIVE: CASE EVENT DATE: 20200821
